FAERS Safety Report 4628622-3 (Version None)
Quarter: 2005Q2

REPORT INFORMATION
  Report Type: 
  Country: None (occurrence: None)
  Receive Date: 20050406
  Receipt Date: 20050331
  Transmission Date: 20051028
  Serious: Yes (Hospitalization)
  Sender: FDA-Public Use
  Company Number: NO-MERCK-0504NOR00007

PATIENT
  Age: 67 Year
  Sex: Male

DRUGS (11)
  1. VIOXX [Suspect]
     Indication: RHEUMATOID ARTHRITIS
     Route: 048
     Dates: start: 20000601, end: 20040820
  2. METOPROLOL TARTRATE [Concomitant]
     Route: 048
  3. INSULIN, NEUTRAL [Concomitant]
     Route: 055
     Dates: start: 20001110
  4. INSULIN, BIPHASIC ISOPHANE [INJECTION] [Concomitant]
     Route: 065
  5. INSULIN, BIPHASIC ISOPHANE [INJECTION] [Concomitant]
     Route: 065
  6. PREDNISOLONE [Concomitant]
     Route: 065
     Dates: start: 19980101
  7. LEFLUNOMIDE [Concomitant]
     Route: 065
  8. MEVACOR [Concomitant]
     Route: 065
  9. OMEGA-3 MARINE TRIGLYCERIDES [Concomitant]
     Route: 048
  10. ASPIRIN AND MAGNESIUM OXIDE [Concomitant]
     Route: 065
  11. NITROGLYCERIN [Concomitant]
     Route: 065

REACTIONS (5)
  - DIZZINESS [None]
  - HYPOAESTHESIA [None]
  - MUSCULAR WEAKNESS [None]
  - MYOCARDIAL INFARCTION [None]
  - PUPILLARY LIGHT REFLEX TESTS ABNORMAL [None]
